FAERS Safety Report 14130749 (Version 1)
Quarter: 2017Q4

REPORT INFORMATION
  Report Type: Spontaneous
  Country: US (occurrence: US)
  Receive Date: 20171026
  Receipt Date: 20171026
  Transmission Date: 20180321
  Serious: Yes (Other)
  Sender: FDA-Public Use
  Company Number: US-ASTELLAS-2017US042634

PATIENT
  Sex: Female

DRUGS (1)
  1. MYRBETRIQ [Suspect]
     Active Substance: MIRABEGRON
     Indication: HYPERTONIC BLADDER
     Route: 048

REACTIONS (8)
  - Bladder disorder [Unknown]
  - Treatment noncompliance [Unknown]
  - Hypertension [Unknown]
  - Drug ineffective [Unknown]
  - Nocturia [Unknown]
  - Renal impairment [Unknown]
  - Cystitis [Unknown]
  - Intentional product misuse [Unknown]
